FAERS Safety Report 9838067 (Version 1)
Quarter: 2014Q1

REPORT INFORMATION
  Report Type: Spontaneous
  Country: US (occurrence: US)
  Receive Date: 20140123
  Receipt Date: 20140123
  Transmission Date: 20141002
  Serious: Yes (Hospitalization)
  Sender: FDA-Public Use
  Company Number: US-BAXTER-2014BAX001785

PATIENT
  Age: 35 Year
  Sex: Female

DRUGS (4)
  1. DIANEAL LOW CALCIUM [Suspect]
     Indication: RENAL FAILURE CHRONIC
     Route: 033
  2. DIANEAL LOW CALCIUM [Suspect]
     Indication: RENAL FAILURE CHRONIC
     Route: 033
  3. LEVOPHED [Suspect]
     Indication: HYPOTENSION
     Route: 042
     Dates: start: 20140107
  4. MAGNESIUM CHLORIDE [Suspect]
     Indication: BLOOD MAGNESIUM DECREASED
     Route: 042
     Dates: start: 20140107

REACTIONS (5)
  - Blood magnesium decreased [Recovered/Resolved]
  - Blood albumin decreased [Recovered/Resolved]
  - Blood pressure systolic decreased [Recovered/Resolved]
  - Blood potassium decreased [Recovered/Resolved]
  - Dehydration [Recovered/Resolved]
